FAERS Safety Report 14794286 (Version 3)
Quarter: 2018Q2

REPORT INFORMATION
  Report Type: Spontaneous
  Country: ES (occurrence: ES)
  Receive Date: 20180423
  Receipt Date: 20180628
  Transmission Date: 20180711
  Serious: Yes (Other)
  Sender: FDA-Public Use
  Company Number: ES-BAUSCH-BL-2018-011843

PATIENT
  Age: 70 Year
  Sex: Female

DRUGS (6)
  1. HERBESSER [Suspect]
     Active Substance: DILTIAZEM HYDROCHLORIDE
     Indication: ARTHRALGIA
  2. METHOTREXATE. [Suspect]
     Active Substance: METHOTREXATE
     Indication: CACHEXIA
     Dosage: 10 MG/WK
     Route: 048
  3. PREDNISONE. [Concomitant]
     Active Substance: PREDNISONE
     Indication: CACHEXIA
  4. PREDNISONE. [Concomitant]
     Active Substance: PREDNISONE
     Indication: ARTHRALGIA
  5. HERBESSER [Suspect]
     Active Substance: DILTIAZEM HYDROCHLORIDE
     Indication: CACHEXIA
     Dosage: LOW-DOSE
     Route: 048
  6. METHOTREXATE. [Suspect]
     Active Substance: METHOTREXATE
     Indication: ARTHRALGIA

REACTIONS (4)
  - Hypotension [Unknown]
  - Cellulitis [Unknown]
  - Mucocutaneous ulceration [Unknown]
  - Skin ulcer [Recovered/Resolved]
